FAERS Safety Report 10285236 (Version 1)
Quarter: 2014Q3

REPORT INFORMATION
  Report Type: Spontaneous
  Country: ES (occurrence: ES)
  Receive Date: 20140708
  Receipt Date: 20140708
  Transmission Date: 20150326
  Serious: Yes (Hospitalization, Other)
  Sender: FDA-Public Use
  Company Number: ES-WATSON-2014-14385

PATIENT
  Age: 46 Year
  Sex: Male

DRUGS (2)
  1. ACECLOFENAC [Suspect]
     Active Substance: ACECLOFENAC
     Indication: BACK PAIN
     Dosage: 200 MG, DAILY
     Route: 065
  2. DESMOPRESSIN [Suspect]
     Active Substance: DESMOPRESSIN
     Indication: DIABETES INSIPIDUS
     Dosage: 10 ?G, DAILY, DIVIDED IN 2 DOSES
     Route: 045

REACTIONS (3)
  - Hyponatraemia [Recovered/Resolved]
  - Potentiating drug interaction [Recovered/Resolved]
  - Blood creatine phosphokinase increased [Unknown]
